FAERS Safety Report 26157248 (Version 1)
Quarter: 2025Q4

REPORT INFORMATION
  Report Type: Spontaneous
  Country: EU (occurrence: EU)
  Receive Date: 20251215
  Receipt Date: 20251215
  Transmission Date: 20260117
  Serious: Yes (Hospitalization)
  Sender: MYLAN
  Company Number: EU-MYLANLABS-2025M1104390

PATIENT
  Age: 20 Year
  Sex: Female

DRUGS (24)
  1. EPINEPHRINE [Suspect]
     Active Substance: EPINEPHRINE
     Indication: Local anaesthesia
     Dosage: 1 MILLIGRAM (0.5 MG OF EPINEPHRINE PER TONSIL)
  2. EPINEPHRINE [Suspect]
     Active Substance: EPINEPHRINE
     Dosage: 1 MILLIGRAM (0.5 MG OF EPINEPHRINE PER TONSIL)
     Route: 065
  3. EPINEPHRINE [Suspect]
     Active Substance: EPINEPHRINE
     Dosage: 1 MILLIGRAM (0.5 MG OF EPINEPHRINE PER TONSIL)
     Route: 065
  4. EPINEPHRINE [Suspect]
     Active Substance: EPINEPHRINE
     Dosage: 1 MILLIGRAM (0.5 MG OF EPINEPHRINE PER TONSIL)
  5. LIDOCAINE HYDROCHLORIDE [Suspect]
     Active Substance: LIDOCAINE HYDROCHLORIDE
     Indication: Local anaesthesia
     Dosage: 20 MILLIGRAM (10 MG OF LIDOCAINE PER NOSTRIL)
  6. LIDOCAINE HYDROCHLORIDE [Suspect]
     Active Substance: LIDOCAINE HYDROCHLORIDE
     Dosage: 20 MILLIGRAM (10 MG OF LIDOCAINE PER NOSTRIL)
     Route: 065
  7. LIDOCAINE HYDROCHLORIDE [Suspect]
     Active Substance: LIDOCAINE HYDROCHLORIDE
     Dosage: 20 MILLIGRAM (10 MG OF LIDOCAINE PER NOSTRIL)
     Route: 065
  8. LIDOCAINE HYDROCHLORIDE [Suspect]
     Active Substance: LIDOCAINE HYDROCHLORIDE
     Dosage: 20 MILLIGRAM (10 MG OF LIDOCAINE PER NOSTRIL)
  9. CEFAZOLIN [Concomitant]
     Active Substance: CEFAZOLIN
     Indication: Antibiotic prophylaxis
     Dosage: 2 GRAM
  10. CEFAZOLIN [Concomitant]
     Active Substance: CEFAZOLIN
     Dosage: 2 GRAM
     Route: 065
  11. CEFAZOLIN [Concomitant]
     Active Substance: CEFAZOLIN
     Dosage: 2 GRAM
     Route: 065
  12. CEFAZOLIN [Concomitant]
     Active Substance: CEFAZOLIN
     Dosage: 2 GRAM
  13. ATROPINE [Concomitant]
     Active Substance: ATROPINE
     Indication: Product used for unknown indication
     Dosage: 0.5 MILLIGRAM
  14. ATROPINE [Concomitant]
     Active Substance: ATROPINE
     Dosage: 0.5 MILLIGRAM
     Route: 065
  15. ATROPINE [Concomitant]
     Active Substance: ATROPINE
     Dosage: 0.5 MILLIGRAM
     Route: 065
  16. ATROPINE [Concomitant]
     Active Substance: ATROPINE
     Dosage: 0.5 MILLIGRAM
  17. NALBUFIN [Concomitant]
     Indication: Product used for unknown indication
     Dosage: 20 MILLIGRAM
  18. NALBUFIN [Concomitant]
     Dosage: 20 MILLIGRAM
     Route: 065
  19. NALBUFIN [Concomitant]
     Dosage: 20 MILLIGRAM
     Route: 065
  20. NALBUFIN [Concomitant]
     Dosage: 20 MILLIGRAM
  21. MIDAZOLAM [Concomitant]
     Active Substance: MIDAZOLAM
     Indication: Product used for unknown indication
     Dosage: 2 MILLIGRAM
  22. MIDAZOLAM [Concomitant]
     Active Substance: MIDAZOLAM
     Dosage: 2 MILLIGRAM
     Route: 065
  23. MIDAZOLAM [Concomitant]
     Active Substance: MIDAZOLAM
     Dosage: 2 MILLIGRAM
     Route: 065
  24. MIDAZOLAM [Concomitant]
     Active Substance: MIDAZOLAM
     Dosage: 2 MILLIGRAM

REACTIONS (1)
  - Facial paralysis [Recovered/Resolved]
